FAERS Safety Report 5253142-5 (Version None)
Quarter: 2007Q1

REPORT INFORMATION
  Report Type: 
  Country: None (occurrence: None)
  Receive Date: 20070301
  Receipt Date: 20070226
  Transmission Date: 20070707
  Serious: Yes (Hospitalization)
  Sender: FDA-Public Use
  Company Number: FR-GLAXOSMITHKLINE-B0459937A

PATIENT
  Age: 77 Year
  Sex: Male
  Weight: 92 kg

DRUGS (18)
  1. AMOXICILLIN TRIHYDRATE [Suspect]
     Indication: DERMO-HYPODERMITIS
     Route: 065
     Dates: start: 20070101, end: 20070105
  2. AUGMENTIN '125' [Suspect]
     Indication: DERMO-HYPODERMITIS
     Route: 065
     Dates: start: 20070101, end: 20070105
  3. LASIX [Concomitant]
  4. ACUPAN [Concomitant]
  5. TAZOCILLINE [Concomitant]
     Dates: start: 20070105
  6. GENTAMICIN [Concomitant]
     Dates: start: 20070105, end: 20070107
  7. MODOPAR [Concomitant]
  8. PARLODEL [Concomitant]
  9. MOTILIUM [Concomitant]
     Indication: NAUSEA
  10. ALPRESS [Concomitant]
  11. SPIRONOLACTONE [Concomitant]
  12. CIRKAN [Concomitant]
  13. SEROPRAM [Concomitant]
  14. ATARAX [Concomitant]
  15. ALPRAZOLAM [Concomitant]
  16. CELEBREX [Concomitant]
     Dosage: 400MG PER DAY
  17. PARIET [Concomitant]
     Dosage: 10MG PER DAY
  18. SERESTA [Concomitant]

REACTIONS (4)
  - EOSINOPHILIA [None]
  - GAMMA-GLUTAMYLTRANSFERASE INCREASED [None]
  - HEPATOCELLULAR DAMAGE [None]
  - TRANSAMINASES INCREASED [None]
